FAERS Safety Report 6213649-0 (Version None)
Quarter: 2009Q2

REPORT INFORMATION
  Report Type: 
  Country: None (occurrence: None)
  Receive Date: 20090603
  Receipt Date: 20090527
  Transmission Date: 20091009
  Serious: Yes (Hospitalization, Other)
  Sender: FDA-Public Use
  Company Number: US-BAXTER-2008BH004711

PATIENT
  Sex: Female

DRUGS (1)
  1. HEPARIN SODIUM INJECTION [Suspect]
     Indication: PROPHYLAXIS
     Route: 065
     Dates: start: 20030101

REACTIONS (8)
  - CHILLS [None]
  - DYSPNOEA [None]
  - MITRAL VALVE DISEASE [None]
  - MUSCLE SPASMS [None]
  - NIGHT SWEATS [None]
  - REGURGITATION [None]
  - RESPIRATORY DISORDER [None]
  - WEIGHT DECREASED [None]
